FAERS Safety Report 4834490-7 (Version None)
Quarter: 2005Q4

REPORT INFORMATION
  Report Type: 
  Country: None (occurrence: None)
  Receive Date: 20051122
  Receipt Date: 20041228
  Transmission Date: 20060501
  Serious: No
  Sender: FDA-Public Use
  Company Number: US-BRISTOL-MYERS SQUIBB COMPANY-12807889

PATIENT
  Age: 67 Year
  Sex: Male
  Weight: 75 kg

DRUGS (6)
  1. PRAVACHOL [Suspect]
     Indication: HYPERLIPIDAEMIA
     Route: 048
  2. LOTENSIN [Concomitant]
  3. ACTOS [Concomitant]
  4. DILTIAZEM HCL [Concomitant]
  5. HUMULIN 70/30 [Concomitant]
  6. ECOTRIN [Concomitant]

REACTIONS (1)
  - MUSCLE SPASMS [None]
